FAERS Safety Report 8738907 (Version 2)
Quarter: 2012Q4

REPORT INFORMATION
  Report Type: 
  Country: US (occurrence: US)
  Receive Date: 20120823
  Receipt Date: 20121016
  Transmission Date: 20130627
  Serious: Yes (Other)
  Sender: FDA-Public Use
  Company Number: US-INCYTE CORPORATION-2012IN001228

PATIENT
  Age: 66 Year
  Sex: Female
  Weight: 77.55 kg

DRUGS (9)
  1. OSTEO BI-FLEX [Concomitant]
  2. JAKAFI [Suspect]
     Indication: MYELOFIBROSIS
     Dosage: 10 mg, bid
     Route: 048
     Dates: start: 20120216, end: 2012
  3. JAKAFI [Suspect]
     Indication: POLYCYTHAEMIA VERA
     Dosage: 20 mg, bid
     Route: 048
     Dates: start: 201203, end: 20120418
  4. JAKAFI [Suspect]
     Dosage: 10 mg, bid
     Route: 048
     Dates: start: 20120509
  5. PLAQUENIL [Concomitant]
  6. ALLOPURINOL [Concomitant]
  7. ASPIRIN [Concomitant]
     Dosage: 81 mg, UNK
  8. PREVACID [Concomitant]
  9. VITAMINS [Concomitant]

REACTIONS (6)
  - Pancytopenia [Recovered/Resolved]
  - Blood bilirubin increased [Recovered/Resolved]
  - Alanine aminotransferase increased [Recovered/Resolved]
  - Aspartate aminotransferase increased [Recovered/Resolved]
  - White blood cell count increased [None]
  - Platelet count increased [None]
